FAERS Safety Report 24202098 (Version 1)
Quarter: 2024Q3

REPORT INFORMATION
  Report Type: Spontaneous
  Country: US (occurrence: US)
  Receive Date: 20240812
  Receipt Date: 20240812
  Transmission Date: 20241017
  Serious: No
  Sender: ROCHE
  Company Number: US-ROCHE-3562968

PATIENT
  Age: 13 Year
  Sex: Male
  Weight: 32.66 kg

DRUGS (4)
  1. NUTROPIN AQ [Suspect]
     Active Substance: SOMATROPIN
     Indication: Growth hormone deficiency
     Dosage: STRENGTH : 10MG/2ML
     Route: 058
     Dates: start: 20240504
  2. NUTROPIN AQ [Suspect]
     Active Substance: SOMATROPIN
     Indication: Hypopituitarism
  3. CHOLECALCIFEROL [Concomitant]
     Active Substance: CHOLECALCIFEROL
     Indication: Osteochondrosis
     Route: 048
  4. LIDOCAINE\PRILOCAINE [Concomitant]
     Active Substance: LIDOCAINE\PRILOCAINE
     Dosage: 2.5%/2.5% STRENGTH
     Route: 061
     Dates: start: 20240521

REACTIONS (3)
  - Underdose [Unknown]
  - Burning sensation [Not Recovered/Not Resolved]
  - Product complaint [Unknown]
